FAERS Safety Report 13232649 (Version 1)
Quarter: 2017Q1

REPORT INFORMATION
  Report Type: Spontaneous
  Country: US (occurrence: US)
  Receive Date: 20170214
  Receipt Date: 20170214
  Transmission Date: 20170428
  Serious: No
  Sender: FDA-Public Use
  Company Number: US-009507513-1702USA003601

PATIENT
  Sex: Female

DRUGS (2)
  1. DULERA [Suspect]
     Active Substance: FORMOTEROL FUMARATE DIHYDRATE\MOMETASONE FUROATE
     Indication: EMPHYSEMA
     Dosage: UNK
     Route: 055
  2. ACCOLATE [Concomitant]
     Active Substance: ZAFIRLUKAST

REACTIONS (3)
  - Drug dose omission [Unknown]
  - Product use issue [Unknown]
  - Dyspnoea [Not Recovered/Not Resolved]
